FAERS Safety Report 6207074-6 (Version None)
Quarter: 2009Q2

REPORT INFORMATION
  Report Type: 
  Country: None (occurrence: None)
  Receive Date: 20090528
  Receipt Date: 20090522
  Transmission Date: 20091009
  Serious: Yes (Other)
  Sender: FDA-Public Use
  Company Number: US-BIOGENIDEC-2009BI013089

PATIENT
  Age: 45 Year
  Sex: Female

DRUGS (2)
  1. TYSABRI [Suspect]
     Indication: MULTIPLE SCLEROSIS
     Route: 042
     Dates: start: 20080604
  2. 4AP [Concomitant]
     Indication: MULTIPLE SCLEROSIS
     Dates: start: 20090425

REACTIONS (2)
  - ASTHENIA [None]
  - GRAND MAL CONVULSION [None]
